FAERS Safety Report 10618991 (Version 2)
Quarter: 2015Q1

REPORT INFORMATION
  Report Type: Spontaneous
  Country: BE (occurrence: BE)
  Receive Date: 20141202
  Receipt Date: 20150216
  Transmission Date: 20150720
  Serious: Yes (Hospitalization, Other)
  Sender: FDA-Public Use
  Company Number: BE-ASTELLAS-2014EU014648

PATIENT
  Age: 57 Year
  Sex: Male

DRUGS (4)
  1. XTANDI [Suspect]
     Active Substance: ENZALUTAMIDE
     Indication: PROSTATE CANCER METASTATIC
     Dosage: 40 MG, 4  TIMES DAILY
     Route: 048
     Dates: start: 20141023
  2. PANTOMED                           /00178901/ [Concomitant]
     Indication: ABDOMINAL PAIN UPPER
     Route: 048
  3. TAMSULOSINE HYDROCHLORIDE [Concomitant]
     Indication: BENIGN PROSTATIC HYPERPLASIA
     Dosage: 0.4 MG, ONCE DAILY
     Route: 048
  4. LITICAN                            /00690801/ [Concomitant]
     Indication: NAUSEA
     Route: 048

REACTIONS (3)
  - Metastases to liver [Unknown]
  - Pain [Recovering/Resolving]
  - Decreased appetite [Recovering/Resolving]

NARRATIVE: CASE EVENT DATE: 20141121
